FAERS Safety Report 4356326-3 (Version None)
Quarter: 2004Q2

REPORT INFORMATION
  Report Type: 
  Country: None (occurrence: None)
  Receive Date: 20040506
  Receipt Date: 20040428
  Transmission Date: 20050107
  Serious: Yes (Life-Threatening, Other)
  Sender: FDA-Public Use
  Company Number: 2004028450

PATIENT
  Age: 22 Year
  Sex: Female

DRUGS (1)
  1. UNASYN [Suspect]
     Indication: URINARY TRACT INFECTION
     Dosage: 3 GRAM (2 IN 1 D), INTRAVENOUS
     Route: 042
     Dates: start: 20040401

REACTIONS (3)
  - COMPLICATIONS OF MATERNAL EXPOSURE TO THERAPEUTIC DRUGS [None]
  - INTRA-UTERINE DEATH [None]
  - MATERNAL DRUGS AFFECTING FOETUS [None]
